FAERS Safety Report 6591542-1 (Version None)
Quarter: 2010Q1

REPORT INFORMATION
  Report Type: 
  Country: None (occurrence: None)
  Receive Date: 20100221
  Receipt Date: 20100212
  Transmission Date: 20100710
  Serious: Yes (Hospitalization, Other)
  Sender: FDA-Public Use
  Company Number: US-ALLERGAN-1001904US

PATIENT
  Age: 63 Year
  Sex: Female

DRUGS (6)
  1. ELESTAT [Suspect]
     Indication: EYE IRRITATION
     Dosage: 1 GTT, QPM
     Route: 047
     Dates: start: 20100201
  2. NEURONTIN [Concomitant]
     Indication: NEURALGIA
     Dosage: 300 MG, BID
     Route: 048
  3. IBUPROFEN [Concomitant]
     Dosage: UNK
     Route: 048
  4. LORAZEPAM [Concomitant]
     Indication: ANXIETY
     Dosage: 0.5 MG, PRN
     Route: 048
  5. PRAVASTAN [Concomitant]
  6. ESTROGEN [Concomitant]

REACTIONS (2)
  - BLOOD PRESSURE INCREASED [None]
  - CHEST DISCOMFORT [None]
